FAERS Safety Report 4672408-0 (Version None)
Quarter: 2005Q2

REPORT INFORMATION
  Report Type: 
  Country: None (occurrence: None)
  Receive Date: 20050524
  Receipt Date: 20050512
  Transmission Date: 20051028
  Serious: Yes (Death, Hospitalization)
  Sender: FDA-Public Use
  Company Number: NSADSS2003004937

PATIENT
  Sex: Female

DRUGS (4)
  1. REMICADE [Suspect]
     Indication: ANKYLOSING SPONDYLITIS
     Route: 041
     Dates: start: 20020901
  2. OXYCODONE HCL [Concomitant]
     Route: 049
  3. HORMONE REPLACEMENT [Concomitant]
  4. METHOTREXATE [Concomitant]

REACTIONS (1)
  - ENCEPHALOPATHY [None]
